FAERS Safety Report 5942590-3 (Version None)
Quarter: 2008Q4

REPORT INFORMATION
  Report Type: 
  Country: None (occurrence: None)
  Receive Date: 20081103
  Receipt Date: 20081023
  Transmission Date: 20090506
  Serious: Yes (Death)
  Sender: FDA-Public Use
  Company Number: ADE2008-0360

PATIENT
  Age: 70 Year
  Sex: Female
  Weight: 60 kg

DRUGS (3)
  1. FLUOXETINE [Suspect]
     Indication: DEPRESSION
     Dosage: 60MG - ORAL
     Route: 048
     Dates: start: 20070201
  2. LANSOPRAZOLE [Concomitant]
  3. MAGNESIUM SULFATE [Concomitant]

REACTIONS (6)
  - ASPIRATION [None]
  - BRONCHOPNEUMONIA [None]
  - CONFUSIONAL STATE [None]
  - DRUG TOXICITY [None]
  - OVERDOSE [None]
  - UNRESPONSIVE TO STIMULI [None]
